FAERS Safety Report 25400219 (Version 1)
Quarter: 2025Q2

REPORT INFORMATION
  Report Type: Spontaneous
  Country: US (occurrence: US)
  Receive Date: 20250605
  Receipt Date: 20250605
  Transmission Date: 20250717
  Serious: Yes (Hospitalization, Other)
  Sender: MERCK SHARP & DOHME LLC
  Company Number: US-009507513-2292141

PATIENT
  Age: 79 Year
  Sex: Male

DRUGS (2)
  1. KEYTRUDA [Suspect]
     Active Substance: PEMBROLIZUMAB
     Indication: Malignant splenic neoplasm
     Dosage: 100MG/6 WEEKS
     Route: 042
     Dates: start: 202501, end: 202503
  2. GABAPENTIN [Concomitant]
     Active Substance: GABAPENTIN
     Indication: Muscle relaxant therapy

REACTIONS (3)
  - Malignant neoplasm progression [Not Recovered/Not Resolved]
  - Product use in unapproved indication [Unknown]
  - Hospitalisation [Recovered/Resolved]

NARRATIVE: CASE EVENT DATE: 20250101
